FAERS Safety Report 25938961 (Version 3)
Quarter: 2025Q4

REPORT INFORMATION
  Report Type: Report from Study
  Country: US (occurrence: US)
  Receive Date: 20251019
  Receipt Date: 20251120
  Transmission Date: 20260118
  Serious: Yes (Death, Hospitalization)
  Sender: ABBVIE
  Company Number: US-ABBVIE-6508162

PATIENT
  Age: 69 Year
  Sex: Female

DRUGS (1)
  1. CREON [Suspect]
     Active Substance: PANCRELIPASE AMYLASE\PANCRELIPASE LIPASE\PANCRELIPASE PROTEASE
     Indication: Pancreatic failure
     Route: 048
     Dates: start: 20250819

REACTIONS (8)
  - Death [Fatal]
  - Weight decreased [Unknown]
  - Dehydration [Unknown]
  - Neuroendocrine tumour [Recovering/Resolving]
  - Hepatic function abnormal [Unknown]
  - Hepatic neuroendocrine tumour [Unknown]
  - Cardiac disorder [Unknown]
  - Renal impairment [Unknown]

NARRATIVE: CASE EVENT DATE: 20250101
